FAERS Safety Report 22380312 (Version 1)
Quarter: 2023Q2

REPORT INFORMATION
  Report Type: Spontaneous
  Country: CN (occurrence: CN)
  Receive Date: 20230529
  Receipt Date: 20230529
  Transmission Date: 20230722
  Serious: Yes (Disabling, Other)
  Sender: FDA-Public Use
  Company Number: CN-009507513-2305CHN007509

PATIENT
  Age: 47 Year
  Sex: Male
  Weight: 61 kg

DRUGS (1)
  1. CILASTATIN SODIUM\IMIPENEM [Suspect]
     Active Substance: CILASTATIN SODIUM\IMIPENEM
     Indication: Septic shock
     Dosage: 0.5 GRAM, TID
     Route: 041
     Dates: start: 20230110, end: 20230128

REACTIONS (3)
  - Logorrhoea [Recovered/Resolved]
  - Confusional state [Unknown]
  - Expired product administered [Unknown]

NARRATIVE: CASE EVENT DATE: 20230110
